FAERS Safety Report 10035399 (Version 2)
Quarter: 2014Q1

REPORT INFORMATION
  Report Type: Spontaneous
  Country: US (occurrence: US)
  Receive Date: 20140325
  Receipt Date: 20140325
  Transmission Date: 20141002
  Serious: Yes (Hospitalization, Other)
  Sender: FDA-Public Use
  Company Number: US-009507513-1203USA00309

PATIENT
  Sex: Female
  Weight: 157.8 kg

DRUGS (2)
  1. FOSAMAX [Suspect]
     Indication: OSTEOPOROSIS
     Dosage: 70 MG, QW
     Route: 048
     Dates: start: 2001, end: 2008
  2. ALENDRONATE SODIUM [Suspect]
     Indication: OSTEOPOROSIS
     Dosage: 70 MG, QW
     Route: 048
     Dates: start: 2008, end: 2011

REACTIONS (18)
  - Femur fracture [Unknown]
  - Intramedullary rod insertion [Unknown]
  - Femur fracture [Unknown]
  - Intramedullary rod insertion [Unknown]
  - Low turnover osteopathy [Unknown]
  - Pneumonia [Unknown]
  - Tooth extraction [Unknown]
  - Limb operation [Unknown]
  - Hypothyroidism [Unknown]
  - Hypertension [Unknown]
  - Blood cholesterol increased [Unknown]
  - Sciatica [Unknown]
  - Knee operation [Unknown]
  - Neurectomy [Unknown]
  - Fatigue [Unknown]
  - Dyspnoea [Unknown]
  - Cough [Unknown]
  - Heart sounds abnormal [Unknown]
